FAERS Safety Report 15279264 (Version 1)
Quarter: 2018Q3

REPORT INFORMATION
  Report Type: Spontaneous
  Country: ES (occurrence: ES)
  Receive Date: 20180815
  Receipt Date: 20180815
  Transmission Date: 20181010
  Serious: Yes (Other)
  Sender: FDA-Public Use
  Company Number: ES-TEVA-2018-ES-940825

PATIENT
  Age: 65 Year
  Sex: Male

DRUGS (2)
  1. HIDROFEROL 0,266 MG CAPSULAS BLANDAS , 5 C?PSULAS (BLISTER PVC/PVDC?AL [Concomitant]
     Route: 048
     Dates: start: 20170424
  2. ATORVASTATIN [Suspect]
     Active Substance: ATORVASTATIN
     Indication: HYPERCHOLESTEROLAEMIA
     Dosage: 10 MILLIGRAM DAILY;
     Route: 048
     Dates: start: 20160126, end: 20180529

REACTIONS (2)
  - Myalgia [Recovered/Resolved]
  - Erectile dysfunction [Recovered/Resolved]

NARRATIVE: CASE EVENT DATE: 201805
